FAERS Safety Report 6445076-5 (Version None)
Quarter: 2009Q4

REPORT INFORMATION
  Report Type: 
  Country: None (occurrence: None)
  Receive Date: 20091118
  Receipt Date: 20091103
  Transmission Date: 20100525
  Serious: Yes (Death, Other)
  Sender: FDA-Public Use
  Company Number: IL-GENENTECH-293149

PATIENT
  Age: 55 Year
  Sex: Male

DRUGS (8)
  1. MABTHERA [Suspect]
     Indication: WEGENER'S GRANULOMATOSIS
     Dosage: 500 MG, Q2W
     Route: 042
  2. SULFAMETHOXAZOLE AND TRIMETHOPRIM [Suspect]
     Indication: PROPHYLAXIS
     Route: 065
  3. CYCLOPHOSPHAMIDE [Suspect]
     Indication: WEGENER'S GRANULOMATOSIS
     Dosage: 2 MG/KG, UNK
     Dates: end: 20050401
  4. PREDNISONE [Suspect]
     Indication: WEGENER'S GRANULOMATOSIS
     Dosage: 80 MG, UNK
     Route: 065
  5. METHOTREXATE [Suspect]
     Indication: WEGENER'S GRANULOMATOSIS
     Dosage: 15 MG, 1/WEEK
     Route: 065
  6. AZATHIOPRINE [Suspect]
     Indication: WEGENER'S GRANULOMATOSIS
     Dosage: 150 MG, UNK
     Route: 065
  7. DEXAMETHASONE [Suspect]
     Indication: WEGENER'S GRANULOMATOSIS
     Dosage: 4 MG, UNK
     Route: 065
  8. METHYLPREDNISOLONE 4MG TAB [Suspect]
     Indication: WEGENER'S GRANULOMATOSIS
     Dosage: 1000 MG, UNK
     Route: 042

REACTIONS (2)
  - MULTI-ORGAN FAILURE [None]
  - PYREXIA [None]
